FAERS Safety Report 18171392 (Version 2)
Quarter: 2020Q4

REPORT INFORMATION
  Report Type: Spontaneous
  Country: US (occurrence: US)
  Receive Date: 20200819
  Receipt Date: 20201217
  Transmission Date: 20210113
  Serious: No
  Sender: FDA-Public Use
  Company Number: US-TEVA-2020-US-1816853

PATIENT
  Age: 54 Year
  Sex: Female

DRUGS (1)
  1. TAMOXIFEN CITRATE. [Suspect]
     Active Substance: TAMOXIFEN CITRATE
     Route: 065

REACTIONS (2)
  - Illness [Unknown]
  - Malaise [Unknown]
